FAERS Safety Report 7894876-3 (Version None)
Quarter: 2011Q4

REPORT INFORMATION
  Report Type: 
  Country: None (occurrence: None)
  Receive Date: 20111106
  Receipt Date: 20110819
  Transmission Date: 20120403
  Serious: No
  Sender: FDA-Public Use
  Company Number: US-AMGEN-USASP2011042466

PATIENT
  Sex: Female

DRUGS (2)
  1. SORIATANE [Concomitant]
     Dosage: UNK
  2. ENBREL [Suspect]
     Indication: PSORIASIS
     Dosage: 50 MG, 2 TIMES/WK
     Dates: start: 20010701, end: 20070101

REACTIONS (2)
  - BLOOD GLUCOSE INCREASED [None]
  - PERIARTHRITIS [None]
